FAERS Safety Report 4284147-9 (Version None)
Quarter: 2004Q1

REPORT INFORMATION
  Report Type: 
  Country: None (occurrence: None)
  Receive Date: 20040203
  Receipt Date: 20030801
  Transmission Date: 20041129
  Serious: Yes (Congenital Anomaly)
  Sender: FDA-Public Use
  Company Number: GB-GLAXOSMITHKLINE-B0306077A

PATIENT
  Sex: Female
  Weight: 2.6 kg

DRUGS (3)
  1. LAMIVUDINE + ZIDOVUDINE [Suspect]
     Dosage: 2TAB PER DAY
     Dates: start: 20030224, end: 20030502
  2. NEVIRAPINE [Suspect]
     Dosage: 200MG PER DAY
     Dates: start: 20030224, end: 20030309
  3. NEVIRAPINE [Suspect]
     Dosage: 400MG PER DAY
     Dates: start: 20030310, end: 20030502

REACTIONS (3)
  - HIP DYSPLASIA [None]
  - MATERNAL DRUGS AFFECTING FOETUS [None]
  - PUPILLARY REFLEX IMPAIRED [None]
